FAERS Safety Report 6443055-5 (Version None)
Quarter: 2009Q4

REPORT INFORMATION
  Report Type: 
  Country: None (occurrence: None)
  Receive Date: 20091117
  Receipt Date: 20091111
  Transmission Date: 20100525
  Serious: Yes (Other)
  Sender: FDA-Public Use
  Company Number: AT-B.I. PHARMACEUTICALS,INC./RIDGEFIELD-2009-AP-00330AP

PATIENT
  Age: 72 Year
  Sex: Male
  Weight: 72 kg

DRUGS (5)
  1. SPIRIVA 18UG- KAPSELN MIT INHALATIONSPULVER (BLIND) [Suspect]
     Indication: CHRONIC OBSTRUCTIVE PULMONARY DISEASE
     Dosage: 18 MCG
     Route: 055
     Dates: start: 20090915, end: 20091013
  2. BUDIAIR [Concomitant]
     Indication: CHRONIC OBSTRUCTIVE PULMONARY DISEASE
     Dosage: 0.4 MG ONE TIME PER DAY
     Route: 055
     Dates: start: 20090915
  3. ISOPTIN [Concomitant]
     Dosage: 240 MG
  4. LISINOPRIL [Concomitant]
     Indication: MYOCARDIAL INFARCTION
     Dosage: 5 MG
  5. LISINOPRIL [Concomitant]
     Indication: HYPERTENSION

REACTIONS (2)
  - CEREBROVASCULAR ACCIDENT [None]
  - REVERSIBLE ISCHAEMIC NEUROLOGICAL DEFICIT [None]
